FAERS Safety Report 7028889-0 (Version None)
Quarter: 2010Q4

REPORT INFORMATION
  Report Type: 
  Country: None (occurrence: None)
  Receive Date: 20101005
  Receipt Date: 20100924
  Transmission Date: 20110411
  Serious: Yes (Life-Threatening, Hospitalization)
  Sender: FDA-Public Use
  Company Number: US-BAXTER-2010BH022914

PATIENT
  Age: 67 Year
  Sex: Female
  Weight: 90 kg

DRUGS (1)
  1. DIANEAL [Suspect]
     Indication: PERITONEAL DIALYSIS
     Route: 033
     Dates: end: 20100101

REACTIONS (8)
  - BLOOD CULTURE POSITIVE [None]
  - CHILLS [None]
  - ESCHERICHIA TEST POSITIVE [None]
  - HAEMODIALYSIS [None]
  - NAUSEA [None]
  - PYREXIA [None]
  - SEPSIS [None]
  - VOMITING [None]
